FAERS Safety Report 19111014 (Version 4)
Quarter: 2021Q2

REPORT INFORMATION
  Report Type: Report from Study
  Country: US (occurrence: US)
  Receive Date: 20210409
  Receipt Date: 20210622
  Transmission Date: 20210717
  Serious: Yes (Hospitalization, Other)
  Sender: FDA-Public Use
  Company Number: US-BIOGEN-2021BI00998927

PATIENT
  Sex: Female

DRUGS (5)
  1. TECFIDERA [Suspect]
     Active Substance: DIMETHYL FUMARATE
     Indication: MULTIPLE SCLEROSIS
     Route: 065
     Dates: start: 20170216
  2. TYSABRI [Suspect]
     Active Substance: NATALIZUMAB
     Indication: MULTIPLE SCLEROSIS
     Route: 065
  3. GELSYN [Concomitant]
     Indication: OSTEOPOROSIS
     Route: 065
  4. BACKLOFEN [Concomitant]
     Indication: FEMUR FRACTURE
     Route: 065
  5. DILAUDID [Concomitant]
     Active Substance: HYDROMORPHONE HYDROCHLORIDE
     Indication: FEMUR FRACTURE
     Route: 065

REACTIONS (6)
  - Interstitial lung disease [Unknown]
  - Pneumonia [Recovered/Resolved with Sequelae]
  - Haemorrhage [Unknown]
  - Respiratory failure [Unknown]
  - Hip fracture [Unknown]
  - Fall [Recovered/Resolved]
